FAERS Safety Report 25708448 (Version 1)
Quarter: 2025Q3

REPORT INFORMATION
  Report Type: Spontaneous
  Country: US (occurrence: US)
  Receive Date: 20250821
  Receipt Date: 20250821
  Transmission Date: 20251021
  Serious: No
  Sender: STRIDES
  Company Number: US-STRIDES ARCOLAB LIMITED-2025SP009262

PATIENT
  Sex: Female

DRUGS (3)
  1. TACROLIMUS [Suspect]
     Active Substance: TACROLIMUS
     Indication: Product used for unknown indication
     Route: 065
  2. MINOXIDIL [Suspect]
     Active Substance: MINOXIDIL
     Indication: Product used for unknown indication
     Route: 048
  3. PIMECROLIMUS [Suspect]
     Active Substance: PIMECROLIMUS
     Indication: Product used for unknown indication
     Route: 061

REACTIONS (1)
  - Multiple drug hypersensitivity [Unknown]
